FAERS Safety Report 13263959 (Version 1)
Quarter: 2017Q1

REPORT INFORMATION
  Report Type: Spontaneous
  Country: IT (occurrence: IT)
  Receive Date: 20170223
  Receipt Date: 20170223
  Transmission Date: 20170428
  Serious: Yes (Other)
  Sender: FDA-Public Use
  Company Number: IT-TEVA-741128ACC

PATIENT
  Age: 82 Year
  Sex: Female

DRUGS (8)
  1. TICLOPIDINA [Concomitant]
     Active Substance: TICLOPIDINE
  2. OMEPRAZOLO [Concomitant]
     Active Substance: OMEPRAZOLE
  3. GABAPENTIN. [Concomitant]
     Active Substance: GABAPENTIN
  4. RAMIPRIL. [Suspect]
     Active Substance: RAMIPRIL
     Dosage: 2.5 MILLIGRAM DAILY;
  5. AMLODIPINA [Suspect]
     Active Substance: AMLODIPINE BESYLATE
     Dosage: 10 MILLIGRAM DAILY;
  6. CETIRIZINA [Concomitant]
     Active Substance: CETIRIZINE HYDROCHLORIDE
  7. ROSUVASTATIN. [Concomitant]
     Active Substance: ROSUVASTATIN
  8. OSSICODONE CLORIDRATO [Concomitant]

REACTIONS (6)
  - Anaemia [Recovered/Resolved]
  - Hyperkalaemia [Recovered/Resolved]
  - Renal impairment [Recovered/Resolved]
  - Hypercreatininaemia [Recovered/Resolved]
  - Asthenia [Recovered/Resolved]
  - Malaise [Recovered/Resolved]
